FAERS Safety Report 16837473 (Version 18)
Quarter: 2021Q2

REPORT INFORMATION
  Report Type: Report from Study
  Country: JP (occurrence: JP)
  Receive Date: 20190923
  Receipt Date: 20210615
  Transmission Date: 20210716
  Serious: Yes (Other)
  Sender: FDA-Public Use
  Company Number: JP-ASTELLAS-2019JP019863

PATIENT
  Age: 44 Year
  Sex: Female
  Weight: 51 kg

DRUGS (17)
  1. RABEPRAZOLE NA [Concomitant]
     Active Substance: RABEPRAZOLE SODIUM
     Indication: PROPHYLAXIS
     Dosage: 10 MG/ DAY, UNKNOWN FREQ.
     Route: 048
  2. NEORAL [Concomitant]
     Active Substance: CYCLOSPORINE
     Indication: PROPHYLAXIS AGAINST GRAFT VERSUS HOST DISEASE
     Dosage: 100 MG/ DAY, UNKNOWN FREQ.
     Route: 048
     Dates: start: 20191111
  3. PREVYMIS [Concomitant]
     Active Substance: LETERMOVIR
     Indication: PROPHYLAXIS
     Dosage: 240 MG/ DAY, UNKNOWN FREQ.
     Route: 048
     Dates: end: 20200107
  4. ASP2215 [Interacting]
     Active Substance: GILTERITINIB
     Route: 048
     Dates: start: 20191210, end: 20191216
  5. FLUCONAZOLE. [Interacting]
     Active Substance: FLUCONAZOLE
     Indication: PROPHYLAXIS
     Dosage: 200 MG/DAY, UNKNOWN FREQ.
     Route: 048
  6. PREDONINE [Concomitant]
     Active Substance: PREDNISOLONE
     Indication: GRAFT VERSUS HOST DISEASE
     Route: 048
     Dates: start: 20191204, end: 20200121
  7. ACICLOVIR [Concomitant]
     Active Substance: ACYCLOVIR
     Indication: PROPHYLAXIS
     Dosage: 200 MG/ DAY, UNKNOWN FREQ.
     Route: 048
  8. ASP2215 [Suspect]
     Active Substance: GILTERITINIB
     Indication: ACUTE MYELOID LEUKAEMIA REFRACTORY
     Dosage: UNK UNK, UNKNOWN FREQ.
     Route: 048
     Dates: start: 20190718
  9. ASP2215 [Interacting]
     Active Substance: GILTERITINIB
     Route: 048
  10. ASP2215 [Interacting]
     Active Substance: GILTERITINIB
     Route: 048
  11. ENDOXAN [Concomitant]
     Active Substance: CYCLOPHOSPHAMIDE
     Indication: ACUTE MYELOID LEUKAEMIA REFRACTORY
     Dosage: 60 MG/ DAY, UNKNOWN FREQ.
     Route: 065
     Dates: start: 20191006, end: 20191007
  12. ASP2215 [Interacting]
     Active Substance: GILTERITINIB
     Route: 048
     Dates: start: 20191217, end: 20200127
  13. ASP2215 [Interacting]
     Active Substance: GILTERITINIB
     Route: 048
     Dates: start: 20200128
  14. BAKTAR [Concomitant]
     Active Substance: SULFAMETHOXAZOLE\TRIMETHOPRIM
     Indication: PROPHYLAXIS
     Dosage: 1.5 TABLET/ WEEK, UNKNOWN FREQ.
     Route: 048
  15. ASP2215 [Interacting]
     Active Substance: GILTERITINIB
     Route: 048
     Dates: start: 20190828, end: 20191002
  16. URSO [Concomitant]
     Active Substance: URSODIOL
     Indication: PROPHYLAXIS
     Dosage: 300 MG/ DAY, UNKNOWN FREQ.
     Route: 048
  17. MAALOX TC [Concomitant]
     Active Substance: ALUMINUM HYDROXIDE\MAGNESIUM HYDROXIDE
     Indication: PROPHYLAXIS
     Dosage: 3.6 G/ DAY, UNKNOWN FREQ.
     Route: 048

REACTIONS (8)
  - Liver abscess [Recovered/Resolved]
  - Blood creatine phosphokinase increased [Recovered/Resolved]
  - Hepatic function abnormal [Recovering/Resolving]
  - Alanine aminotransferase increased [Not Recovered/Not Resolved]
  - Drug interaction [Unknown]
  - Aspartate aminotransferase increased [Not Recovered/Not Resolved]
  - Graft versus host disease [Recovered/Resolved]
  - Pancytopenia [Recovered/Resolved]

NARRATIVE: CASE EVENT DATE: 20190905
